FAERS Safety Report 6508318-3 (Version None)
Quarter: 2009Q4

REPORT INFORMATION
  Report Type: 
  Country: None (occurrence: None)
  Receive Date: 20091221
  Receipt Date: 20081105
  Transmission Date: 20100525
  Serious: No
  Sender: FDA-Public Use
  Company Number: US-ASTRAZENECA-2008UW24773

PATIENT
  Age: 75 Year
  Sex: Female
  Weight: 67.1 kg

DRUGS (4)
  1. CRESTOR [Suspect]
     Indication: HYPERTRIGLYCERIDAEMIA
     Dosage: 10 MG
     Route: 048
     Dates: start: 20070501
  2. TRICOR [Suspect]
     Dosage: 145 MG
     Dates: start: 20080401
  3. SYNTHROID [Concomitant]
  4. METOPROLOL TARTRATE [Concomitant]

REACTIONS (6)
  - ASTHENIA [None]
  - BACK PAIN [None]
  - DENTAL CARIES [None]
  - DYSPNOEA EXERTIONAL [None]
  - FATIGUE [None]
  - RHINORRHOEA [None]
